FAERS Safety Report 11904863 (Version 1)
Quarter: 2016Q1

REPORT INFORMATION
  Report Type: Spontaneous
  Country: US (occurrence: US)
  Receive Date: 20160108
  Receipt Date: 20160108
  Transmission Date: 20160526
  Serious: No
  Sender: FDA-Public Use
  Company Number: US-ROCHE-1647574

PATIENT
  Sex: Female

DRUGS (3)
  1. CYMBALTA [Concomitant]
     Active Substance: DULOXETINE HYDROCHLORIDE
  2. BIOTIN [Concomitant]
     Active Substance: BIOTIN
  3. RITUXAN [Suspect]
     Active Substance: RITUXIMAB
     Indication: HYPOMAGNESAEMIA
     Route: 042
     Dates: start: 20150416

REACTIONS (1)
  - Alopecia [Unknown]
